FAERS Safety Report 5061318-5 (Version None)
Quarter: 2006Q3

REPORT INFORMATION
  Report Type: 
  Country: None (occurrence: None)
  Receive Date: 20060719
  Receipt Date: 20060719
  Transmission Date: 20061208
  Serious: Yes (Life-Threatening, Other)
  Sender: FDA-Public Use
  Company Number: None

PATIENT
  Age: 58 Year
  Sex: Male
  Weight: 86.1834 kg

DRUGS (2)
  1. NABUMETONE [Suspect]
     Indication: BURSITIS
     Dosage: ONE TABLET TWICE DAILY
     Dates: start: 20060530, end: 20060707
  2. NABUMETONE [Suspect]
     Indication: PLANTAR FASCIITIS
     Dosage: ONE TABLET TWICE DAILY
     Dates: start: 20060530, end: 20060707

REACTIONS (2)
  - HEART RATE INCREASED [None]
  - PALPITATIONS [None]
